FAERS Safety Report 19295254 (Version 10)
Quarter: 2022Q1

REPORT INFORMATION
  Report Type: Spontaneous
  Country: GB (occurrence: GB)
  Receive Date: 20210524
  Receipt Date: 20220120
  Transmission Date: 20220423
  Serious: Yes (Other)
  Sender: FDA-Public Use
  Company Number: GB-MYLANLABS-2020M1106133

PATIENT
  Age: 68 Year
  Sex: Female

DRUGS (15)
  1. ATORVASTATIN CALCIUM [Suspect]
     Active Substance: ATORVASTATIN CALCIUM
     Indication: Hypercholesterolaemia
     Dosage: 80 MG, 1X/DAY (OD)
  2. SERTRALINE HYDROCHLORIDE [Suspect]
     Active Substance: SERTRALINE HYDROCHLORIDE
     Dosage: 200 MG, MONTHLY (QMO)
  3. SERTRALINE HYDROCHLORIDE [Suspect]
     Active Substance: SERTRALINE HYDROCHLORIDE
     Dosage: 200 MILLIGRAM, AM (OM)
  4. SERTRALINE HYDROCHLORIDE [Suspect]
     Active Substance: SERTRALINE HYDROCHLORIDE
     Dosage: 200 MG, MONTHLY (QMO)
  5. HYDROXYUREA [Suspect]
     Active Substance: HYDROXYUREA
     Indication: Polycythaemia
     Dosage: 1 G, 1X/DAY (QD)
  6. ZOPICLONE [Suspect]
     Active Substance: ZOPICLONE
     Dosage: 7.5 MG, AS NEEDED (PRN)
  7. LACTULOSE [Suspect]
     Active Substance: LACTULOSE
     Indication: Constipation
     Dosage: UNK
  8. CLOZARIL [Suspect]
     Active Substance: CLOZAPINE
     Indication: Schizophrenia
     Dosage: 225 MG
     Route: 048
     Dates: start: 20100602
  9. CLOZARIL [Suspect]
     Active Substance: CLOZAPINE
     Dosage: 225 MG
     Route: 048
     Dates: start: 20100602
  10. ASPIRIN [Suspect]
     Active Substance: ASPIRIN
     Dosage: 75 MG, 1X/DAY (OD)
  11. ARIPIPRAZOLE [Suspect]
     Active Substance: ARIPIPRAZOLE
     Indication: Schizophrenia
     Dosage: 15 MG, 1X/DAY (OD)
  12. ARIPIPRAZOLE [Suspect]
     Active Substance: ARIPIPRAZOLE
     Dosage: 75 MG, QD
     Route: 065
  13. HYDROXYUREA [Suspect]
     Active Substance: HYDROXYUREA
     Indication: Polycythaemia
     Dosage: 1 G, 1X/DAY (QD)
  14. ASPIRIN [Suspect]
     Active Substance: ASPIRIN
     Dosage: 75 MG, 1X/DAY (QD)
     Route: 065
  15. ASPIRIN [Suspect]
     Active Substance: ASPIRIN
     Dosage: 75 MG, 1X/DAY (QD)
     Route: 065

REACTIONS (5)
  - Haemoglobin increased [Not Recovered/Not Resolved]
  - Anaemia [Unknown]
  - Haematocrit increased [Not Recovered/Not Resolved]
  - Intentional product use issue [Unknown]
  - Contraindicated product administered [Unknown]

NARRATIVE: CASE EVENT DATE: 20201223
